FAERS Safety Report 5080442-4 (Version None)
Quarter: 2006Q3

REPORT INFORMATION
  Report Type: 
  Country: None (occurrence: None)
  Receive Date: 20060815
  Receipt Date: 19981214
  Transmission Date: 20061208
  Serious: Yes (Hospitalization)
  Sender: FDA-Public Use
  Company Number: FR-SOLVAY-00201004276

PATIENT
  Age: 57 Year
  Sex: Male

DRUGS (5)
  1. ATENOLOL [Concomitant]
     Indication: ILL-DEFINED DISORDER
     Dosage: DAILY DOSE: UNK. FREQUENCY:UNKNOWN
     Route: 065
     Dates: start: 19980915
  2. PERINDOPRIL ERBUMINE [Suspect]
     Indication: VENTRICULAR DYSFUNCTION
     Dosage: DAILY DOSE: UNK. FREQUENCY:UNKNOWN
     Route: 048
  3. SIMVASTATIN [Concomitant]
     Indication: ILL-DEFINED DISORDER
     Dosage: DAILY DOSE: UNK. FREQUENCY:UNKNOWN
     Route: 065
     Dates: start: 19980915
  4. RANITIDINE [Concomitant]
     Indication: ILL-DEFINED DISORDER
     Dosage: DAILY DOSE: UNK. FREQUENCY:UNKNOWN
     Route: 065
     Dates: start: 19980915
  5. ASPIRIN [Concomitant]
     Indication: ILL-DEFINED DISORDER
     Dosage: DAILY DOSE: UNK. FREQUENCY:UNKNOWN
     Route: 065
     Dates: start: 19980922

REACTIONS (3)
  - ANGINA PECTORIS [None]
  - CHEST PAIN [None]
  - CORONARY ARTERY OCCLUSION [None]
